FAERS Safety Report 6954689-3 (Version None)
Quarter: 2010Q3

REPORT INFORMATION
  Report Type: 
  Country: None (occurrence: None)
  Receive Date: 20100829
  Receipt Date: 20100820
  Transmission Date: 20110219
  Serious: Yes (Hospitalization)
  Sender: FDA-Public Use
  Company Number: US-US-EMD SERONO, INC.-7003273

PATIENT
  Sex: Female
  Weight: 61 kg

DRUGS (4)
  1. REBIF [Suspect]
     Indication: MULTIPLE SCLEROSIS
     Route: 058
     Dates: start: 20090102
  2. DETROL [Concomitant]
     Indication: POLLAKIURIA
  3. GABAPENTIN [Concomitant]
     Indication: INSOMNIA
  4. GABAPENTIN [Concomitant]
     Indication: PARAESTHESIA

REACTIONS (2)
  - BREAST CANCER [None]
  - INFLUENZA LIKE ILLNESS [None]
